FAERS Safety Report 9212345 (Version 1)
Quarter: 2013Q2

REPORT INFORMATION
  Report Type: Spontaneous
  Country: PT (occurrence: PT)
  Receive Date: 20130404
  Receipt Date: 20130404
  Transmission Date: 20140414
  Serious: Yes (Other)
  Sender: FDA-Public Use
  Company Number: PT-B.I. PHARMACEUTICALS,INC./RIDGEFIELD-2013-BI-08971PO

PATIENT
  Age: 69 Year
  Sex: Male

DRUGS (8)
  1. PRADAXA [Suspect]
     Indication: ATRIAL FIBRILLATION
     Dosage: 220 MG
     Route: 048
     Dates: start: 201301
  2. ASPIRIN [Concomitant]
     Dates: start: 201301
  3. LISINOPRIL [Concomitant]
     Dosage: 20 MG
  4. ATORVASTATIN [Concomitant]
     Dosage: 20 MG
  5. CONCOR [Concomitant]
     Dosage: 5 MG
  6. EFFICIB [Concomitant]
     Dosage: 2 ANZ
  7. TAMSULOSIN [Concomitant]
  8. FINASTERIDE [Concomitant]

REACTIONS (3)
  - Cerebrovascular accident [Recovered/Resolved]
  - Paraesthesia [Recovered/Resolved]
  - Dizziness [Recovered/Resolved]
